FAERS Safety Report 6745134-1 (Version None)
Quarter: 2010Q2

REPORT INFORMATION
  Report Type: 
  Country: None (occurrence: None)
  Receive Date: 20100527
  Receipt Date: 20100518
  Transmission Date: 20101027
  Serious: Yes (Life-Threatening, Hospitalization)
  Sender: FDA-Public Use
  Company Number: FR-GENENTECH-302118

PATIENT
  Sex: Male
  Weight: 81 kg

DRUGS (6)
  1. RITUXIMAB [Suspect]
     Indication: MALIGNANT LYMPHOID NEOPLASM
     Dosage: 760 MG, UNK
     Route: 042
     Dates: start: 20081120
  2. METHOTREXATE [Suspect]
     Indication: MALIGNANT LYMPHOID NEOPLASM
     Dosage: 6 G, UNK
     Route: 042
     Dates: start: 20081120, end: 20090101
  3. CARMUSTINE [Suspect]
     Indication: MALIGNANT LYMPHOID NEOPLASM
     Dosage: 200 MG, UNK
     Route: 042
     Dates: start: 20081122, end: 20081221
  4. ETOPOSIDE [Suspect]
     Indication: MALIGNANT LYMPHOID NEOPLASM
     Dosage: 200 MG, UNK
     Route: 065
     Dates: start: 20081121, end: 20081220
  5. PREDNISOLONE [Suspect]
     Indication: MALIGNANT LYMPHOID NEOPLASM
     Dosage: 120 MG, UNK
     Route: 065
     Dates: start: 20081120, end: 20081124
  6. CYTARABINE [Suspect]
     Indication: MALIGNANT LYMPHOID NEOPLASM
     Dosage: 6 G, UNK
     Route: 065
     Dates: start: 20090117, end: 20090118

REACTIONS (1)
  - FEBRILE BONE MARROW APLASIA [None]
